FAERS Safety Report 23007898 (Version 2)
Quarter: 2025Q3

REPORT INFORMATION
  Report Type: Spontaneous
  Country: CA (occurrence: CA)
  Receive Date: 20230929
  Receipt Date: 20250829
  Transmission Date: 20251021
  Serious: Yes (Other)
  Sender: MYLAN
  Company Number: CA-MYLANLABS-2023M1099325

PATIENT
  Age: 41 Year
  Sex: Female

DRUGS (6)
  1. ALPRAZOLAM [Suspect]
     Active Substance: ALPRAZOLAM
     Indication: Depression
  2. BUPROPION [Suspect]
     Active Substance: BUPROPION
     Indication: Depression
  3. BUSPIRONE [Suspect]
     Active Substance: BUSPIRONE HYDROCHLORIDE
     Indication: Depression
  4. ZOPICLONE [Suspect]
     Active Substance: ZOPICLONE
     Indication: Depression
  5. LITHIUM [Suspect]
     Active Substance: LITHIUM
     Indication: Depression
  6. LITHIUM CARBONATE [Suspect]
     Active Substance: LITHIUM CARBONATE
     Indication: Depression

REACTIONS (2)
  - Therapy partial responder [Unknown]
  - Therapeutic response decreased [Unknown]
